FAERS Safety Report 25982623 (Version 1)
Quarter: 2025Q4

REPORT INFORMATION
  Report Type: Spontaneous
  Country: EU (occurrence: EU)
  Receive Date: 20251031
  Receipt Date: 20251031
  Transmission Date: 20260118
  Serious: Yes (Hospitalization)
  Sender: UCB
  Company Number: None

PATIENT
  Age: 6 Year
  Weight: 19.6 kg

DRUGS (2)
  1. BRIVIACT [Suspect]
     Active Substance: BRIVARACETAM
     Indication: Partial seizures
     Dosage: 6 MILLILITER, ONCE DAILY (QD)
  2. CLOBAZAM [Concomitant]
     Active Substance: CLOBAZAM
     Indication: Partial seizures
     Dosage: 25 MILLILITER, ONCE DAILY (QD)

REACTIONS (2)
  - Abdominal pain [Recovered/Resolved]
  - Lipase increased [Recovered/Resolved]
